FAERS Safety Report 9338190 (Version 1)
Quarter: 2013Q2

REPORT INFORMATION
  Report Type: Spontaneous
  Country: FR (occurrence: FR)
  Receive Date: 20130610
  Receipt Date: 20130610
  Transmission Date: 20140414
  Serious: Yes (Other)
  Sender: FDA-Public Use
  Company Number: FR-ROCHE-1232174

PATIENT
  Age: 62 Year
  Sex: Male

DRUGS (16)
  1. ROCEPHINE [Suspect]
     Indication: PRODUCT USED FOR UNKNOWN INDICATION
     Route: 042
     Dates: start: 20130411, end: 20130504
  2. DALACINE [Suspect]
     Indication: PRODUCT USED FOR UNKNOWN INDICATION
     Route: 042
     Dates: start: 20130430, end: 20130509
  3. DALACINE [Suspect]
     Indication: PRODUCT USED FOR UNKNOWN INDICATION
     Route: 048
     Dates: end: 20130509
  4. EUPANTOL [Suspect]
     Indication: PRODUCT USED FOR UNKNOWN INDICATION
     Route: 065
     Dates: start: 20130502, end: 20130511
  5. GENTALLINE [Concomitant]
     Route: 065
  6. GENTALLINE [Concomitant]
     Route: 065
     Dates: start: 20130429
  7. ENALAPRIL [Concomitant]
     Route: 048
  8. ESIDREX [Concomitant]
     Route: 048
  9. KARDEGIC [Concomitant]
     Route: 048
  10. AMOXICILLIN [Concomitant]
     Route: 065
     Dates: start: 20130318
  11. AMOXICILLIN [Concomitant]
     Route: 065
  12. VENOFER [Concomitant]
  13. LOVENOX [Concomitant]
     Dosage: DOSE: 0.4 (UNIT NOT REPORTED)
     Route: 065
  14. LASILIX [Concomitant]
     Route: 065
  15. GRANOCYTE 34 [Concomitant]
     Dosage: DAILY DOSE: 1 AMPULE
     Route: 065
  16. SIMVASTATIN [Concomitant]
     Route: 065
     Dates: end: 20130511

REACTIONS (2)
  - Agranulocytosis [Recovered/Resolved]
  - Rash maculo-papular [Recovered/Resolved]
